FAERS Safety Report 5695947-2 (Version None)
Quarter: 2008Q2

REPORT INFORMATION
  Report Type: 
  Country: None (occurrence: None)
  Receive Date: 20080407
  Receipt Date: 20080325
  Transmission Date: 20081010
  Serious: Yes (Hospitalization, Other)
  Sender: FDA-Public Use
  Company Number: BE-AMGEN-UK264980

PATIENT
  Sex: Male

DRUGS (11)
  1. KEPIVANCE [Suspect]
     Indication: MUCOSAL INFLAMMATION
     Route: 042
     Dates: start: 20071218, end: 20071220
  2. KEPIVANCE [Suspect]
     Route: 042
     Dates: start: 20071229, end: 20071231
  3. DIFLUCAN [Concomitant]
     Route: 042
     Dates: start: 20071218
  4. COLIMYCINE [Concomitant]
     Route: 048
     Dates: start: 20071218, end: 20071227
  5. CARMUSTINE [Concomitant]
     Route: 042
     Dates: start: 20071221, end: 20071226
  6. ETOPOSIDE [Concomitant]
     Route: 042
     Dates: start: 20071221, end: 20071226
  7. CYTARABINE [Concomitant]
     Route: 042
     Dates: start: 20071221, end: 20071226
  8. MELPHALAN [Concomitant]
     Route: 042
     Dates: start: 20071221, end: 20071226
  9. ZOVIRAX [Concomitant]
     Route: 042
     Dates: start: 20071218
  10. BACTRIM [Concomitant]
     Route: 048
     Dates: start: 20070701
  11. ZANTAC [Concomitant]
     Route: 048
     Dates: start: 20070701

REACTIONS (4)
  - DIARRHOEA [None]
  - ENTEROCOCCAL BACTERAEMIA [None]
  - HYPOTENSION [None]
  - PYREXIA [None]
